FAERS Safety Report 8406812-1 (Version None)
Quarter: 2012Q2

REPORT INFORMATION
  Report Type: 
  Country: None (occurrence: None)
  Receive Date: 20120529
  Receipt Date: 19940805
  Transmission Date: 20120825
  Serious: Yes (Hospitalization)
  Sender: FDA-Public Use
  Company Number: 002155

PATIENT
  Age: 75 Year
  Sex: Male

DRUGS (3)
  1. PLETAL [Suspect]
     Dosage: 200 MG, DAILY DOSE, ORAL
     Route: 047
     Dates: start: 19940201, end: 19940416
  2. ISOSORBIDE MONONITRATE [Concomitant]
  3. RANITIDE HYDROCHLORIDE (RANITINE HYDROCHLORIDE) [Concomitant]

REACTIONS (3)
  - ABDOMINAL DISCOMFORT [None]
  - CHOLELITHIASIS [None]
  - CHOLECYSTITIS CHRONIC [None]
